FAERS Safety Report 10692982 (Version 1)
Quarter: 2015Q1

REPORT INFORMATION
  Report Type: Spontaneous
  Country: US (occurrence: None)
  Receive Date: 20150105
  Receipt Date: 20150105
  Transmission Date: 20150720
  Serious: No
  Sender: FDA-Public Use
  Company Number: None

PATIENT
  Age: 40 Year
  Sex: Female
  Weight: 58.06 kg

DRUGS (1)
  1. AZITHROMYCIN [Suspect]
     Active Substance: AZITHROMYCIN ANHYDROUS
     Indication: SINUSITIS
     Dosage: 2 PILLSX1, THEN 1 PILL X4D ONCE DAILY TAKEN BY MOUTH
     Route: 048
     Dates: start: 20131230, end: 20131231

REACTIONS (15)
  - Nausea [None]
  - Decreased appetite [None]
  - Asthenia [None]
  - Product quality issue [None]
  - Somnolence [None]
  - Product substitution issue [None]
  - Disturbance in attention [None]
  - Dizziness [None]
  - Cold sweat [None]
  - Feeling of body temperature change [None]
  - Mobility decreased [None]
  - Insomnia [None]
  - Headache [None]
  - Disorientation [None]
  - Malaise [None]

NARRATIVE: CASE EVENT DATE: 20131230
